FAERS Safety Report 9677510 (Version 3)
Quarter: 2013Q4

REPORT INFORMATION
  Report Type: Spontaneous
  Country: FR (occurrence: FR)
  Receive Date: 20131108
  Receipt Date: 20131216
  Transmission Date: 20140711
  Serious: Yes (Hospitalization, Other)
  Sender: FDA-Public Use
  Company Number: PHHY2013FR125039

PATIENT
  Age: 45 Year
  Sex: Male
  Weight: 68 kg

DRUGS (8)
  1. GILENYA [Suspect]
     Indication: RELAPSING-REMITTING MULTIPLE SCLEROSIS
     Dosage: 0.5 MG, QD
     Route: 048
     Dates: start: 20130227, end: 20131008
  2. SOLUMEDROL [Suspect]
     Indication: MULTIPLE SCLEROSIS RELAPSE
     Dosage: 1 G, QD
     Route: 042
     Dates: start: 20131002, end: 20131004
  3. SOLUMEDROL [Suspect]
     Indication: GAIT DISTURBANCE
  4. HAVLANE [Concomitant]
     Route: 048
  5. CYMBALTA [Concomitant]
     Route: 048
  6. URBANYL [Concomitant]
     Route: 048
  7. LAROXYL [Concomitant]
     Route: 048
  8. INSULIN [Concomitant]

REACTIONS (5)
  - Meningitis viral [Recovering/Resolving]
  - Confusional state [Unknown]
  - Pyrexia [Unknown]
  - Multiple sclerosis relapse [Unknown]
  - Gait disturbance [Unknown]
